FAERS Safety Report 8277342-5 (Version None)
Quarter: 2012Q2

REPORT INFORMATION
  Report Type: 
  Country: None (occurrence: None)
  Receive Date: 20120412
  Receipt Date: 20120410
  Transmission Date: 20120825
  Serious: Yes (Death)
  Sender: FDA-Public Use
  Company Number: BO-PFIZER INC-2012078349

PATIENT
  Age: 78 Year
  Sex: Female

DRUGS (3)
  1. GENOTROPIN [Suspect]
     Indication: OFF LABEL USE
     Dosage: 36 IU, 1X/DAY
     Route: 058
     Dates: start: 20120222
  2. GENOTROPIN [Suspect]
     Indication: TISSUE SEALING
  3. INSULIN [Concomitant]
     Indication: DIABETES MELLITUS
     Dosage: UNK
     Route: 058

REACTIONS (1)
  - HYPOGLYCAEMIA [None]
